FAERS Safety Report 18197916 (Version 1)
Quarter: 2020Q3

REPORT INFORMATION
  Report Type: Spontaneous
  Country: DE (occurrence: DE)
  Receive Date: 20200826
  Receipt Date: 20200826
  Transmission Date: 20201103
  Serious: Yes (Other)
  Sender: FDA-Public Use
  Company Number: DE-ASTRAZENECA-2020SF05728

PATIENT
  Age: 25809 Day
  Sex: Female

DRUGS (4)
  1. PACLITAXEL. [Concomitant]
     Active Substance: PACLITAXEL
     Dosage: DOSE AND FREQUENCY UNKNOWN
     Route: 065
  2. LYNPARZA [Suspect]
     Active Substance: OLAPARIB
     Indication: OVARIAN CANCER
     Dosage: 600.0MG UNKNOWN
     Route: 048
     Dates: start: 20190901, end: 20200101
  3. CARBOPLATIN CAELYX [Concomitant]
     Dosage: DOSE AND FREQUENCY UNKNOWN
     Route: 065
  4. BEVACIZUMAB. [Concomitant]
     Active Substance: BEVACIZUMAB
     Dosage: DOSE AND FREQUENCY UNKNOWN
     Route: 065

REACTIONS (6)
  - Malignant neoplasm progression [Unknown]
  - Drug intolerance [Unknown]
  - Cough [Unknown]
  - Asthenia [Recovered/Resolved]
  - Dyspnoea [Unknown]
  - Thyroid disorder [Recovered/Resolved]

NARRATIVE: CASE EVENT DATE: 20190901
